FAERS Safety Report 5923217-3 (Version None)
Quarter: 2008Q4

REPORT INFORMATION
  Report Type: 
  Country: None (occurrence: None)
  Receive Date: 20081020
  Receipt Date: 20081007
  Transmission Date: 20090506
  Serious: Yes (Other)
  Sender: FDA-Public Use
  Company Number: US-JNJFOC-20081002400

PATIENT
  Sex: Male

DRUGS (2)
  1. MOTRIN [Suspect]
  2. MOTRIN [Suspect]
     Indication: HEADACHE

REACTIONS (3)
  - DRUG HYPERSENSITIVITY [None]
  - LICHENIFICATION [None]
  - PRURITUS [None]
